FAERS Safety Report 5287592-8 (Version None)
Quarter: 2007Q1

REPORT INFORMATION
  Report Type: 
  Country: None (occurrence: None)
  Receive Date: 20070126
  Receipt Date: 20050726
  Transmission Date: 20070707
  Serious: No
  Sender: FDA-Public Use
  Company Number: 2006CT001126

PATIENT
  Age: 54 Year
  Sex: Male
  Weight: 113 kg

DRUGS (3)
  1. VENTAVIS [Suspect]
     Indication: PULMONARY HYPERTENSION
     Dosage: 5 UG 6XD INH
     Route: 055
     Dates: start: 20050531, end: 20050708
  2. PREVACID [Concomitant]
  3. ALLOPURINOL [Concomitant]

REACTIONS (2)
  - DRUG INEFFECTIVE [None]
  - FATIGUE [None]
